FAERS Safety Report 6339354-8 (Version None)
Quarter: 2009Q3

REPORT INFORMATION
  Report Type: 
  Country: None (occurrence: None)
  Receive Date: 20090903
  Receipt Date: 20090821
  Transmission Date: 20100115
  Serious: Yes (Other)
  Sender: FDA-Public Use
  Company Number: GB-ELI_LILLY_AND_COMPANY-GB200908005001

PATIENT
  Sex: Male

DRUGS (1)
  1. BYETTA [Suspect]

REACTIONS (4)
  - BLOOD MAGNESIUM DECREASED [None]
  - CONVULSION [None]
  - MALAISE [None]
  - WEIGHT DECREASED [None]
